FAERS Safety Report 6930827-3 (Version None)
Quarter: 2010Q3

REPORT INFORMATION
  Report Type: 
  Country: None (occurrence: None)
  Receive Date: 20100818
  Receipt Date: 20100809
  Transmission Date: 20110219
  Serious: No
  Sender: FDA-Public Use
  Company Number: US-US-EMD SERONO, INC.-7013830

PATIENT
  Sex: Male

DRUGS (4)
  1. NOVANTRONE [Suspect]
     Indication: PROSTATE CANCER
     Route: 042
     Dates: start: 20090309, end: 20090309
  2. IXEMPRA KIT [Suspect]
     Indication: PROSTATE CANCER
     Route: 042
     Dates: start: 20090309, end: 20090309
  3. PREDNISONE [Suspect]
     Indication: PROSTATE CANCER
     Route: 048
     Dates: start: 20090309, end: 20090316
  4. NEULASTA [Suspect]
     Indication: PROSTATE CANCER
     Route: 058
     Dates: start: 20090309, end: 20090311

REACTIONS (1)
  - LYMPHOPENIA [None]
